FAERS Safety Report 11611267 (Version 2)
Quarter: 2015Q4

REPORT INFORMATION
  Report Type: Spontaneous
  Country: BR (occurrence: BR)
  Receive Date: 20151008
  Receipt Date: 20151009
  Transmission Date: 20160304
  Serious: Yes (Hospitalization, Other)
  Sender: FDA-Public Use
  Company Number: BR-SA-2015SA152708

PATIENT
  Age: 12 Year
  Sex: Female
  Weight: 38 kg

DRUGS (3)
  1. LANTUS [Suspect]
     Active Substance: INSULIN GLARGINE
     Indication: TYPE 1 DIABETES MELLITUS
     Dosage: ARMS, THIGHS AND ABDOMEN?AT THE TIME
     Route: 065
     Dates: start: 2005
  2. INSULIN [Concomitant]
     Active Substance: INSULIN NOS
     Indication: TYPE 1 DIABETES MELLITUS
     Dosage: DOSE: CARBOHYDRATES COUNT APPROXIMATELY 15 IU^S AT BREAKFAST AND 30 IU^S AT LUNCH AND DINNER
     Dates: start: 2005
  3. CLIKSTAR [Suspect]
     Active Substance: CLIKSTAR
     Indication: DEVICE THERAPY
     Dates: start: 2005

REACTIONS (9)
  - Shock [Recovered/Resolved]
  - Coma [Recovered/Resolved]
  - Malaise [Recovered/Resolved]
  - Dyspnoea [Recovered/Resolved]
  - Swelling face [Recovered/Resolved]
  - Blood bicarbonate decreased [Recovered/Resolved]
  - Expired device used [Unknown]
  - Respiratory failure [Recovered/Resolved]
  - Headache [Recovered/Resolved]

NARRATIVE: CASE EVENT DATE: 20150826
